FAERS Safety Report 24572609 (Version 1)
Quarter: 2024Q4

REPORT INFORMATION
  Report Type: Spontaneous
  Country: CN (occurrence: CN)
  Receive Date: 20241101
  Receipt Date: 20241101
  Transmission Date: 20250115
  Serious: Yes (Hospitalization)
  Sender: PFIZER
  Company Number: CN-PFIZER INC-PV202400141830

PATIENT
  Age: 46 Year
  Sex: Female
  Weight: 48 kg

DRUGS (2)
  1. METHYLPREDNISOLONE [Suspect]
     Active Substance: METHYLPREDNISOLONE
     Indication: Systemic lupus erythematosus
     Dosage: 4 MG, 1X/DAY
     Route: 048
     Dates: start: 20240101, end: 20240920
  2. TOTAL GLUCOSIDES OF WHITE PAEONY [Concomitant]
     Indication: Systemic lupus erythematosus
     Dosage: 0.6 G, 3X/DAY
     Route: 048
     Dates: start: 20240101, end: 20240920

REACTIONS (1)
  - Drug-induced liver injury [Recovering/Resolving]

NARRATIVE: CASE EVENT DATE: 20240920
